FAERS Safety Report 5121476-0 (Version None)
Quarter: 2006Q4

REPORT INFORMATION
  Report Type: 
  Country: None (occurrence: None)
  Receive Date: 20061006
  Receipt Date: 20060925
  Transmission Date: 20070319
  Serious: Yes (Hospitalization)
  Sender: FDA-Public Use
  Company Number: PHRM2006FR02639

PATIENT
  Age: 85 Year
  Sex: Female

DRUGS (3)
  1. AREDIA [Suspect]
     Indication: MULTIPLE MYELOMA
     Dosage: 90 MG, QMO
     Route: 042
     Dates: start: 20020615, end: 20060715
  2. ALKERAN [Concomitant]
     Indication: MULTIPLE MYELOMA
  3. DEXAMETHASONE TAB [Concomitant]
     Indication: MULTIPLE MYELOMA

REACTIONS (5)
  - BONE LESION [None]
  - DENTAL EXAMINATION ABNORMAL [None]
  - OSTEOLYSIS [None]
  - OSTEONECROSIS [None]
  - PAIN IN JAW [None]
